FAERS Safety Report 7204998-8 (Version None)
Quarter: 2010Q4

REPORT INFORMATION
  Report Type: 
  Country: None (occurrence: None)
  Receive Date: 20101230
  Receipt Date: 20101220
  Transmission Date: 20110411
  Serious: Yes (Other)
  Sender: FDA-Public Use
  Company Number: PHHY2010CA78403

PATIENT
  Sex: Female

DRUGS (6)
  1. ZOMETA [Suspect]
     Indication: METASTATIC NEOPLASM
     Dosage: UNK, Q4W
     Route: 042
     Dates: start: 20091201, end: 20100901
  2. ZOPICLONE [Concomitant]
  3. TRIATEC [Concomitant]
     Dosage: UNK
  4. IMODIUM [Concomitant]
     Dosage: UNK
  5. VITAMIN D3 [Concomitant]
     Dosage: 1000 IU, DAILY
  6. SUNITINIB MALATE [Concomitant]
     Dosage: UNK
     Route: 048
     Dates: start: 20090101, end: 20101201

REACTIONS (5)
  - BONE DISORDER [None]
  - BONE LESION [None]
  - OSTEONECROSIS [None]
  - PAIN [None]
  - SWELLING [None]
